FAERS Safety Report 8388822-6 (Version None)
Quarter: 2012Q2

REPORT INFORMATION
  Report Type: 
  Country: None (occurrence: None)
  Receive Date: 20120528
  Receipt Date: 20120518
  Transmission Date: 20120825
  Serious: Yes (Life-Threatening, Hospitalization, Other)
  Sender: FDA-Public Use
  Company Number: DE-BIOGENIDEC-2012BI013665

PATIENT
  Sex: Male

DRUGS (6)
  1. TYSABRI [Suspect]
     Dates: start: 20120412
  2. FLUOXETINE [Concomitant]
  3. CARBAMAZEPINE [Concomitant]
  4. UNKNOWN MEDICATION [Concomitant]
  5. TYSABRI [Suspect]
     Indication: RELAPSING-REMITTING MULTIPLE SCLEROSIS
     Route: 042
     Dates: start: 20111201, end: 20120213
  6. AMANTADINE HCL [Concomitant]
     Indication: FATIGUE

REACTIONS (3)
  - PNEUMONIA [None]
  - SEPSIS [None]
  - KETOACIDOSIS [None]
